FAERS Safety Report 10170651 (Version 1)
Quarter: 2014Q2

REPORT INFORMATION
  Report Type: Report from Study
  Country: NO (occurrence: NO)
  Receive Date: 20140514
  Receipt Date: 20140514
  Transmission Date: 20141212
  Serious: Yes (Other)
  Sender: FDA-Public Use
  Company Number: NO-ROCHE-1395506

PATIENT
  Sex: 0

DRUGS (14)
  1. RITUXIMAB [Suspect]
     Indication: NON-HODGKIN^S LYMPHOMA
     Route: 065
  2. PREDNISONE [Suspect]
     Indication: NON-HODGKIN^S LYMPHOMA
     Dosage: 1-29, TAPER TO DAY 35
     Route: 048
  3. PREDNISONE [Suspect]
     Route: 037
  4. VINCRISTINE [Suspect]
     Indication: NON-HODGKIN^S LYMPHOMA
     Dosage: MAX 2.0 MG, ON DAYS 1, 8, 15, 22, 29
     Route: 042
  5. L-ASPARAGINASE [Suspect]
     Indication: NON-HODGKIN^S LYMPHOMA
     Dosage: ON DAYS 8-21
     Route: 042
  6. DOXORUBICINE [Suspect]
     Indication: NON-HODGKIN^S LYMPHOMA
     Dosage: ON DAYS 8, 15, 22
     Route: 042
  7. CYCLOPHOSPHAMIDE [Suspect]
     Indication: NON-HODGKIN^S LYMPHOMA
     Dosage: ON DAYS 15, 22, 29
     Route: 042
  8. DAUNORUBICIN [Suspect]
     Indication: NON-HODGKIN^S LYMPHOMA
     Dosage: ON DAYS 43, 45, 47
     Route: 042
  9. CYTARABINE [Suspect]
     Indication: NON-HODGKIN^S LYMPHOMA
     Dosage: ON DAYS 43 - 47
     Route: 042
  10. CYTARABINE [Suspect]
     Dosage: ON DAYS 78, 92, 106
     Route: 037
  11. 6-THIOGUANINE [Suspect]
     Indication: NON-HODGKIN^S LYMPHOMA
     Dosage: ON DAYS 43 - 47
     Route: 042
  12. 6-MERCAPTOPURINE [Suspect]
     Indication: NON-HODGKIN^S LYMPHOMA
     Dosage: ON DAYS 64 - 111
     Route: 048
  13. METHOTREXATE [Suspect]
     Indication: NON-HODGKIN^S LYMPHOMA
     Dosage: ON DAYS 64, 78
     Route: 042
  14. METHOTREXATE [Suspect]
     Dosage: ON DAYS 15, 29, 43, 64
     Route: 037

REACTIONS (2)
  - Haematotoxicity [Unknown]
  - Febrile neutropenia [Unknown]
